FAERS Safety Report 15217058 (Version 3)
Quarter: 2018Q3

REPORT INFORMATION
  Report Type: Spontaneous
  Country: CN (occurrence: CN)
  Receive Date: 20180730
  Receipt Date: 20180903
  Transmission Date: 20181010
  Serious: Yes (Death, Hospitalization, Other)
  Sender: FDA-Public Use
  Company Number: PHHY2018CN060451

PATIENT
  Age: 70 Year
  Sex: Female

DRUGS (2)
  1. INSULIN [Concomitant]
     Active Substance: INSULIN NOS
     Indication: PRODUCT USED FOR UNKNOWN INDICATION
     Dosage: UNK
     Route: 065
  2. ACLASTA [Suspect]
     Active Substance: ZOLEDRONIC ACID
     Indication: OSTEOPOROSIS POSTMENOPAUSAL
     Dosage: 5 MG, EVERY TIME
     Route: 041
     Dates: start: 20180719, end: 20180719

REACTIONS (13)
  - Vascular dementia [Unknown]
  - Secondary hypothyroidism [Unknown]
  - Hypopituitarism [Unknown]
  - Osteoporosis [Unknown]
  - Hypertension [Unknown]
  - Adams-Stokes syndrome [Unknown]
  - Electrolyte imbalance [Unknown]
  - Pituitary tumour benign [Unknown]
  - Sudden cardiac death [Fatal]
  - Cerebral infarction [Unknown]
  - Pituitary haemorrhage [Unknown]
  - Diabetic neuropathy [Unknown]
  - Pyrexia [Recovering/Resolving]

NARRATIVE: CASE EVENT DATE: 20180720
